FAERS Safety Report 19582820 (Version 1)
Quarter: 2021Q3

REPORT INFORMATION
  Report Type: Report from Study
  Country: None (occurrence: US)
  Receive Date: 20210719
  Receipt Date: 20210719
  Transmission Date: 20211014
  Serious: Yes (Hospitalization, Other)
  Sender: FDA-Public Use
  Company Number: US-ABBVIE-21K-163-3991865-00

PATIENT
  Sex: Female

DRUGS (1)
  1. SKYRIZI [Suspect]
     Active Substance: RISANKIZUMAB-RZAA
     Indication: PSORIASIS
     Route: 058

REACTIONS (12)
  - Renal disorder [Unknown]
  - Cardiac failure congestive [Not Recovered/Not Resolved]
  - Surgery [Unknown]
  - Cellulitis [Not Recovered/Not Resolved]
  - COVID-19 [Unknown]
  - Diplopia [Unknown]
  - Myalgia [Unknown]
  - Blister [Not Recovered/Not Resolved]
  - Pruritus [Not Recovered/Not Resolved]
  - Malaise [Unknown]
  - Injection site pain [Unknown]
  - Fungal infection [Unknown]

NARRATIVE: CASE EVENT DATE: 2021
